FAERS Safety Report 9507186 (Version 1)
Quarter: 2013Q1

REPORT INFORMATION
  Report Type: Spontaneous
  Country: US (occurrence: None)
  Receive Date: 20130305
  Receipt Date: 20130305
  Transmission Date: 20140127
  Serious: Yes (Other)
  Sender: FDA-Public Use
  Company Number: 163-21880-12050834

PATIENT
  Age: 82 Year
  Sex: Female

DRUGS (2)
  1. REVLIMID (LENALIDOMIDE) (25 MILLIGRAM, CAPSULES) [Suspect]
     Indication: MYELODYSPLASTIC SYNDROME
     Dosage: 25 MG, DAILY X 21 DAYS ON FOLLOWED
     Dates: start: 20120426
  2. BLOOD (BLOOD AND RELATED PRODUCTS) (UNKNOWN) [Concomitant]

REACTIONS (2)
  - Full blood count abnormal [None]
  - Constipation [None]
